FAERS Safety Report 24982011 (Version 2)
Quarter: 2025Q1

REPORT INFORMATION
  Report Type: Spontaneous
  Country: IN (occurrence: IN)
  Receive Date: 20250218
  Receipt Date: 20250221
  Transmission Date: 20250409
  Serious: Yes (Other)
  Sender: DR REDDYS
  Company Number: IN-RDY-IND/2025/02/002213

PATIENT
  Age: 64 Year
  Sex: Female
  Weight: 57 kg

DRUGS (4)
  1. GEMCITABINE [Suspect]
     Active Substance: GEMCITABINE
     Indication: Pancreatic carcinoma
     Route: 042
     Dates: start: 20250206, end: 20250206
  2. PAN [Concomitant]
     Indication: Product used for unknown indication
     Route: 048
  3. zincovit [Concomitant]
     Indication: Product used for unknown indication
     Route: 048
  4. Domstal [Concomitant]
     Indication: Product used for unknown indication
     Route: 048

REACTIONS (4)
  - Back pain [Recovered/Resolved]
  - Chills [Recovered/Resolved]
  - Pyrexia [Recovered/Resolved]
  - Oxygen saturation decreased [Recovered/Resolved]

NARRATIVE: CASE EVENT DATE: 20250206
